FAERS Safety Report 9953744 (Version 1)
Quarter: 2014Q1

REPORT INFORMATION
  Report Type: Spontaneous
  Country: US (occurrence: US)
  Receive Date: 20140304
  Receipt Date: 20140304
  Transmission Date: 20141002
  Serious: No
  Sender: FDA-Public Use
  Company Number: US-AMGEN-USASP2013075024

PATIENT
  Age: 52 Year
  Sex: Male
  Weight: 78.01 kg

DRUGS (3)
  1. ENBREL [Suspect]
     Indication: PRODUCT USED FOR UNKNOWN INDICATION
     Dosage: 50 MG, 2 TIMES/WK
     Route: 058
  2. METFORMIN [Concomitant]
     Dosage: 500 MG, UNK
  3. PAXIL                              /00500401/ [Concomitant]
     Dosage: 40 MG, UNK

REACTIONS (1)
  - Psoriasis [Unknown]
